FAERS Safety Report 5783148-9 (Version None)
Quarter: 2008Q2

REPORT INFORMATION
  Report Type: 
  Country: None (occurrence: None)
  Receive Date: 20080619
  Receipt Date: 20080603
  Transmission Date: 20081010
  Serious: Yes (Other)
  Sender: FDA-Public Use
  Company Number: NARC20080003

PATIENT
  Age: 62 Year
  Sex: Female

DRUGS (5)
  1. NALOXONE HCL [Suspect]
     Indication: SEDATION
     Dosage: 2 DOSES, INJECTION
     Dates: start: 20070529, end: 20070529
  2. OXYCONTIN [Suspect]
     Dosage: 10 MG
     Dates: start: 20080529, end: 20080529
  3. MIDAZOLAM HCL [Suspect]
     Dosage: 3 MG
  4. GABAPENTIN [Suspect]
  5. FENTANYL [Suspect]

REACTIONS (9)
  - DIPLOPIA [None]
  - EMBOLISM [None]
  - EYE PAIN [None]
  - HYPERTENSIVE CRISIS [None]
  - INJURY [None]
  - NECK PAIN [None]
  - PHARMACEUTICAL PRODUCT COMPLAINT [None]
  - VISION BLURRED [None]
  - VISUAL FIELD DEFECT [None]
